FAERS Safety Report 13895105 (Version 1)
Quarter: 2017Q3

REPORT INFORMATION
  Report Type: Spontaneous
  Country: US (occurrence: US)
  Receive Date: 20170817
  Receipt Date: 20170817
  Transmission Date: 20171127
  Serious: Yes (Death)
  Sender: FDA-Public Use
  Company Number: None

PATIENT
  Age: 75 Year
  Sex: Female
  Weight: 122.8 kg

DRUGS (1)
  1. ALTEPLASE. [Suspect]
     Active Substance: ALTEPLASE
     Indication: CEREBROVASCULAR ACCIDENT
     Dosage: ?          OTHER FREQUENCY:ONE TIME;?
     Route: 041
     Dates: start: 20170525, end: 20170525

REACTIONS (5)
  - Cerebrovascular accident [None]
  - Respiratory failure [None]
  - Left ventricular failure [None]
  - Hypoxia [None]
  - Haemorrhage intracranial [None]

NARRATIVE: CASE EVENT DATE: 20170525
